FAERS Safety Report 26195514 (Version 1)
Quarter: 2025Q4

REPORT INFORMATION
  Report Type: Spontaneous
  Country: US (occurrence: US)
  Receive Date: 20251224
  Receipt Date: 20251224
  Transmission Date: 20260117
  Serious: Yes (Hospitalization, Other)
  Sender: B. BRAUN MEDICAL INC.
  Company Number: US-B. Braun Medical Inc.-US-BBM-202504924

PATIENT
  Age: 79 Year
  Sex: Male

DRUGS (3)
  1. CEFEPIME [Suspect]
     Active Substance: CEFEPIME HYDROCHLORIDE
     Indication: Urinary tract infection
  2. TRIMETHOPRIM [Suspect]
     Active Substance: TRIMETHOPRIM
  3. SULFAMETHOXAZOLE [Suspect]
     Active Substance: SULFAMETHOXAZOLE

REACTIONS (4)
  - Leukocytosis [Unknown]
  - Acute kidney injury [Unknown]
  - Condition aggravated [Unknown]
  - Hypotension [Unknown]
